FAERS Safety Report 9160948 (Version 1)
Quarter: 2013Q1

REPORT INFORMATION
  Report Type: Spontaneous
  Country: US (occurrence: US)
  Receive Date: 20130313
  Receipt Date: 20130313
  Transmission Date: 20140127
  Serious: No
  Sender: FDA-Public Use
  Company Number: US-BAYER-2013-031746

PATIENT
  Sex: Female
  Weight: 58.05 kg

DRUGS (6)
  1. BETASERON [Suspect]
     Indication: MULTIPLE SCLEROSIS
  2. NAMENDA [Concomitant]
  3. VITAMIN C [ASCORBIC ACID] [Concomitant]
  4. MULTIVITAMIN [Concomitant]
  5. OXYBUTYNIN [Concomitant]
  6. VITAMIN D NOS [Concomitant]

REACTIONS (1)
  - Injection site ulcer [None]
